FAERS Safety Report 10064049 (Version 3)
Quarter: 2014Q2

REPORT INFORMATION
  Report Type: Spontaneous
  Country: SG (occurrence: SG)
  Receive Date: 20140408
  Receipt Date: 20140425
  Transmission Date: 20141212
  Serious: Yes (Other)
  Sender: FDA-Public Use
  Company Number: SG-AMGEN-SGPSP2014024651

PATIENT
  Age: 55 Year
  Sex: Female

DRUGS (4)
  1. NEUPOGEN [Suspect]
     Indication: PRODUCT USED FOR UNKNOWN INDICATION
     Dosage: 0.3 MG/0.5 ML, UNK
     Route: 058
     Dates: start: 20131021, end: 20131023
  2. HERCEPTIN [Concomitant]
     Indication: BREAST CANCER
     Dosage: 430 MG, 1 IN 3 WK
     Route: 042
     Dates: start: 20131018, end: 20140205
  3. TAXOTERE [Concomitant]
     Indication: BREAST CANCER
     Dosage: 115 MG, 1 IN 3 WK
     Route: 042
     Dates: start: 20131018, end: 20140205
  4. CARBOPLATIN [Concomitant]
     Indication: BREAST CANCER
     Dosage: 580 MG, 1 IN 3 WK
     Route: 042
     Dates: start: 20131018, end: 20140205

REACTIONS (2)
  - Bone pain [Recovered/Resolved]
  - Myalgia [Recovered/Resolved]
